FAERS Safety Report 16170447 (Version 2)
Quarter: 2019Q3

REPORT INFORMATION
  Report Type: Spontaneous
  Country: PT (occurrence: PT)
  Receive Date: 20190408
  Receipt Date: 20190919
  Transmission Date: 20191004
  Serious: Yes (Hospitalization, Other)
  Sender: FDA-Public Use
  Company Number: PT-MYLANLABS-2019M1031942

PATIENT
  Age: 11 Year
  Sex: Male

DRUGS (9)
  1. VALPROIC ACID. [Interacting]
     Active Substance: VALPROIC ACID
     Indication: EPILEPSY
  2. AMOXICILLIN. [Concomitant]
     Active Substance: AMOXICILLIN
     Indication: PHARYNGITIS STREPTOCOCCAL
     Dosage: UNK
  3. CLEMASTIN [Concomitant]
     Active Substance: CLEMASTINE
     Indication: CHEILITIS
  4. LAMOTRIGINE. [Suspect]
     Active Substance: LAMOTRIGINE
     Indication: EPILEPSY
     Dosage: UNK
  5. CLEMASTIN [Concomitant]
     Active Substance: CLEMASTINE
     Indication: LYMPHADENOPATHY
  6. CLEMASTIN [Concomitant]
     Active Substance: CLEMASTINE
     Indication: FACE OEDEMA
  7. CLARITHROMYCIN. [Concomitant]
     Active Substance: CLARITHROMYCIN
     Indication: PHARYNGITIS STREPTOCOCCAL
     Dosage: UNK
  8. LEVETIRACETAM. [Concomitant]
     Active Substance: LEVETIRACETAM
     Indication: EPILEPSY
  9. CLEMASTIN [Concomitant]
     Active Substance: CLEMASTINE
     Indication: ANGIOEDEMA

REACTIONS (14)
  - Conjunctivitis [Recovered/Resolved]
  - Leukopenia [Recovering/Resolving]
  - Drug reaction with eosinophilia and systemic symptoms [Recovered/Resolved]
  - Rash [Recovered/Resolved]
  - Drug interaction [Recovered/Resolved]
  - Conjunctival hyperaemia [Recovered/Resolved]
  - Lip erosion [Recovered/Resolved]
  - Pyrexia [Recovered/Resolved]
  - Transaminases increased [Recovered/Resolved]
  - Lymphadenopathy [Recovered/Resolved]
  - Thrombocytopenia [Recovering/Resolving]
  - Condition aggravated [Recovered/Resolved]
  - Cheilitis [Recovered/Resolved]
  - Angioedema [Recovered/Resolved]
